FAERS Safety Report 23965553 (Version 1)
Quarter: 2024Q2

REPORT INFORMATION
  Report Type: Spontaneous
  Country: US (occurrence: US)
  Receive Date: 20240612
  Receipt Date: 20240612
  Transmission Date: 20240716
  Serious: Yes (Other)
  Sender: FDA-Public Use
  Company Number: US-OBAGI COSMECEUTICALS, LLC-2024OBA000072

PATIENT
  Sex: Female

DRUGS (5)
  1. OBAGI MEDICAL PHYSICAL DEFENSE BROAD SPECTRUM MINERAL SUNSCREEN SPF 50 [Suspect]
     Active Substance: TITANIUM DIOXIDE\ZINC OXIDE
     Indication: Product used for unknown indication
     Dosage: UNK
     Route: 061
  2. COSMETICS [Suspect]
     Active Substance: COSMETICS
     Indication: Product used for unknown indication
     Dosage: UNK
     Route: 061
  3. COSMETICS [Suspect]
     Active Substance: COSMETICS
     Indication: Product used for unknown indication
     Dosage: UNK
     Route: 061
  4. COSMETICS [Suspect]
     Active Substance: COSMETICS
     Indication: Product used for unknown indication
     Dosage: UNK
     Route: 061
  5. COSMETICS [Suspect]
     Active Substance: COSMETICS
     Indication: Product used for unknown indication
     Dosage: UNK
     Route: 061

REACTIONS (2)
  - Abortion spontaneous [Unknown]
  - Exposure during pregnancy [Unknown]
